FAERS Safety Report 11182618 (Version 2)
Quarter: 2015Q3

REPORT INFORMATION
  Report Type: Spontaneous
  Country: US (occurrence: US)
  Receive Date: 20150611
  Receipt Date: 20150914
  Transmission Date: 20151125
  Serious: Yes (Other)
  Sender: FDA-Public Use
  Company Number: US-ASTELLAS-2015US016540

PATIENT
  Age: 86 Year
  Sex: Male

DRUGS (2)
  1. XTANDI [Suspect]
     Active Substance: ENZALUTAMIDE
     Dosage: 120 MG, UNK
     Route: 065
     Dates: start: 20140822, end: 20150511
  2. XTANDI [Suspect]
     Active Substance: ENZALUTAMIDE
     Indication: HORMONE-REFRACTORY PROSTATE CANCER
     Dosage: UNK, UNKNOWN FREQ.
     Route: 065
     Dates: start: 20140411, end: 20140821

REACTIONS (5)
  - Blood pressure increased [Unknown]
  - Memory impairment [Recovered/Resolved]
  - Nightmare [Unknown]
  - Underdose [Unknown]
  - Negative thoughts [Unknown]

NARRATIVE: CASE EVENT DATE: 20140822
